FAERS Safety Report 6786869-4 (Version None)
Quarter: 2010Q2

REPORT INFORMATION
  Report Type: 
  Country: None (occurrence: None)
  Receive Date: 20100623
  Receipt Date: 20100617
  Transmission Date: 20101027
  Serious: Yes (Other)
  Sender: FDA-Public Use
  Company Number: US-RB-011889-10

PATIENT
  Age: 38 Year
  Sex: Male

DRUGS (1)
  1. SUBOXONE [Suspect]
     Indication: DRUG USE FOR UNKNOWN INDICATION
     Dosage: DOSING INFORMATION UNKNOWN.
     Route: 065

REACTIONS (11)
  - CONSTIPATION [None]
  - DEPRESSION [None]
  - DRUG WITHDRAWAL SYNDROME [None]
  - HYPERHIDROSIS [None]
  - INSOMNIA [None]
  - LIBIDO DECREASED [None]
  - MOTION SICKNESS [None]
  - NAUSEA [None]
  - RESTLESS LEGS SYNDROME [None]
  - SEXUAL DYSFUNCTION [None]
  - SUICIDAL IDEATION [None]
